FAERS Safety Report 19330268 (Version 1)
Quarter: 2021Q2

REPORT INFORMATION
  Report Type: Spontaneous
  Country: US (occurrence: US)
  Receive Date: 20210529
  Receipt Date: 20210529
  Transmission Date: 20210717
  Serious: Yes (Other)
  Sender: FDA-Public Use
  Company Number: US-PURDUE-USA-2020-0213831

PATIENT
  Sex: Male

DRUGS (5)
  1. HYDROCODONE BITARTRATE AND ACETAMINOPHEN [Suspect]
     Active Substance: ACETAMINOPHEN\HYDROCODONE BITARTRATE
     Indication: PRODUCT USED FOR UNKNOWN INDICATION
     Dosage: UNK
     Route: 048
  2. NORCO [Suspect]
     Active Substance: ACETAMINOPHEN\HYDROCODONE BITARTRATE
     Indication: GASTROINTESTINAL DISORDER
     Dosage: 10/325
     Route: 065
     Dates: start: 1998, end: 2015
  3. METHADONE [Suspect]
     Active Substance: METHADONE HYDROCHLORIDE
     Indication: GASTROINTESTINAL DISORDER
     Dosage: 120 MG, UNK
     Route: 065
     Dates: start: 1998, end: 2015
  4. OXYCONTIN [Suspect]
     Active Substance: OXYCODONE HYDROCHLORIDE
     Indication: GASTROINTESTINAL DISORDER
     Dosage: 185 MG, UNK
     Route: 048
     Dates: start: 1998, end: 2015
  5. NORCO [Suspect]
     Active Substance: ACETAMINOPHEN\HYDROCODONE BITARTRATE
     Dosage: 5 MG, QID
     Route: 065
     Dates: start: 201911

REACTIONS (1)
  - Drug dependence [Unknown]
